FAERS Safety Report 15699424 (Version 4)
Quarter: 2019Q1

REPORT INFORMATION
  Report Type: Other
  Country: FR (occurrence: FR)
  Receive Date: 20181207
  Receipt Date: 20190226
  Transmission Date: 20190417
  Serious: Yes (Other)
  Sender: FDA-Public Use
  Company Number: FR-ASPEN-GLO2018FR012127

PATIENT
  Age: 55 Year
  Sex: Male
  Weight: 91 kg

DRUGS (15)
  1. FLUDARABINE PHOSPHATE. [Suspect]
     Active Substance: FLUDARABINE PHOSPHATE
     Indication: WALDENSTROM^S MACROGLOBULINAEMIA
     Dosage: UNK
     Route: 042
     Dates: start: 20091001, end: 20130919
  2. THYMOGLOBULINE [Suspect]
     Active Substance: LAPINE T-LYMPHOCYTE IMMUNE GLOBULIN
     Indication: WALDENSTROM^S MACROGLOBULINAEMIA
     Dosage: UNK
     Route: 042
  3. VELCADE [Suspect]
     Active Substance: BORTEZOMIB
     Indication: WALDENSTROM^S MACROGLOBULINAEMIA
     Dosage: UNK
     Route: 058
     Dates: start: 20101001, end: 20150619
  4. DEXAMETHASONE. [Suspect]
     Active Substance: DEXAMETHASONE
     Indication: WALDENSTROM^S MACROGLOBULINAEMIA
     Dosage: UNK
     Route: 048
     Dates: start: 20101001, end: 20130319
  5. ETOPOSIDE. [Suspect]
     Active Substance: ETOPOSIDE
     Indication: WALDENSTROM^S MACROGLOBULINAEMIA
     Dosage: UNK
     Route: 042
     Dates: start: 20110501, end: 20130729
  6. CARMUSTINE. [Suspect]
     Active Substance: CARMUSTINE
     Indication: WALDENSTROM^S MACROGLOBULINAEMIA
     Dosage: UNK
     Route: 042
     Dates: start: 20110501, end: 20110531
  7. THALIDOMIDE [Suspect]
     Active Substance: THALIDOMIDE
     Indication: WALDENSTROM^S MACROGLOBULINAEMIA
     Dosage: UNK
     Route: 048
     Dates: start: 20100110, end: 20110301
  8. BUSULFAN. [Suspect]
     Active Substance: BUSULFAN
     Indication: WALDENSTROM^S MACROGLOBULINAEMIA
     Dosage: UNK
     Route: 042
     Dates: start: 20130919, end: 20130919
  9. MELPHALAN. [Suspect]
     Active Substance: MELPHALAN
     Indication: WALDENSTROM^S MACROGLOBULINAEMIA
     Dosage: UNK
     Route: 042
     Dates: start: 20110501, end: 20110530
  10. ENDOXAN [Suspect]
     Active Substance: CYCLOPHOSPHAMIDE
     Indication: WALDENSTROM^S MACROGLOBULINAEMIA
     Dosage: UNK
     Route: 042
     Dates: start: 20091001, end: 20130729
  11. IMBRUVICA [Suspect]
     Active Substance: IBRUTINIB
     Indication: WALDENSTROM^S MACROGLOBULINAEMIA
     Dosage: 420 MG, QD
     Route: 048
     Dates: start: 20160412
  12. VINDESINE SULFATE [Suspect]
     Active Substance: VINDESINE SULFATE
     Indication: WALDENSTROM^S MACROGLOBULINAEMIA
     Dosage: UNK
     Route: 042
     Dates: start: 20130225, end: 20130225
  13. MABTHERA [Suspect]
     Active Substance: RITUXIMAB
     Indication: WALDENSTROM^S MACROGLOBULINAEMIA
     Dosage: UNK
     Route: 042
     Dates: start: 20090601, end: 20100301
  14. CYTARABINE EG [Suspect]
     Active Substance: CYTARABINE
     Indication: WALDENSTROM^S MACROGLOBULINAEMIA
     Dosage: UNK
     Route: 042
     Dates: start: 20110501, end: 20110531
  15. METHOTREXATE. [Suspect]
     Active Substance: METHOTREXATE
     Indication: PROPHYLAXIS AGAINST GRAFT VERSUS HOST DISEASE
     Dosage: UNK
     Route: 042
     Dates: start: 20130921, end: 20130924

REACTIONS (3)
  - Off label use [Unknown]
  - Basal cell carcinoma [Recovered/Resolved]
  - Intentional product use issue [Unknown]

NARRATIVE: CASE EVENT DATE: 201609
